FAERS Safety Report 20865295 (Version 2)
Quarter: 2022Q3

REPORT INFORMATION
  Report Type: Report from Study
  Country: FR (occurrence: None)
  Receive Date: 20220524
  Receipt Date: 20220706
  Transmission Date: 20221027
  Serious: Yes (Other)
  Sender: FDA-Public Use
  Company Number: 2022A192981

PATIENT
  Age: 596 Month
  Sex: Female
  Weight: 58 kg

DRUGS (2)
  1. EVUSHELD [Suspect]
     Active Substance: CILGAVIMAB\TIXAGEVIMAB
     Indication: COVID-19 prophylaxis
     Route: 030
     Dates: start: 20220113
  2. RITUXIMAB [Concomitant]
     Active Substance: RITUXIMAB

REACTIONS (3)
  - Vertigo [Recovered/Resolved]
  - Paralysis [Recovered/Resolved]
  - Fatigue [Recovered/Resolved]

NARRATIVE: CASE EVENT DATE: 20220123
